FAERS Safety Report 9276231 (Version 1)
Quarter: 2012Q4

REPORT INFORMATION
  Report Type: Spontaneous
  Country: US (occurrence: None)
  Receive Date: 20121012
  Receipt Date: 20121012
  Transmission Date: 20130627
  Serious: Yes (Hospitalization)
  Sender: FDA-Public Use
  Company Number: DKLU1085096

PATIENT
  Age: 53 Year
  Sex: Male

DRUGS (1)
  1. SABRIL 	(TABLET) (SABRIL) (VIGABATRIN) (500 MG,TABLET) [Suspect]
     Indication: CONVULSION
     Dosage: 2 IN  1 D
     Route: 048
     Dates: start: 20110811

REACTIONS (1)
  - Pneumonia [None]
